FAERS Safety Report 6790910-2 (Version None)
Quarter: 2010Q2

REPORT INFORMATION
  Report Type: 
  Country: None (occurrence: None)
  Receive Date: 20100624
  Receipt Date: 20100616
  Transmission Date: 20101027
  Serious: Yes (Other)
  Sender: FDA-Public Use
  Company Number: B0662028A

PATIENT
  Sex: Male

DRUGS (1)
  1. RETROVIR [Suspect]
     Indication: HIV INFECTION
     Route: 065

REACTIONS (1)
  - DIABETES MELLITUS [None]
